FAERS Safety Report 22061177 (Version 1)
Quarter: 2023Q1

REPORT INFORMATION
  Report Type: Spontaneous
  Country: TW (occurrence: TW)
  Receive Date: 20230303
  Receipt Date: 20230303
  Transmission Date: 20230417
  Serious: Yes (Other)
  Sender: FDA-Public Use
  Company Number: TW-ANIPHARMA-2023-TW-000013

PATIENT
  Age: 41 Year
  Sex: Female

DRUGS (5)
  1. FLUVOXAMINE [Suspect]
     Active Substance: FLUVOXAMINE
     Indication: Intentional product use issue
     Dosage: 50 MG DAILY
     Dates: start: 20220510
  2. VALPROIC ACID [Suspect]
     Active Substance: VALPROIC ACID
     Indication: Schizophrenia
     Dosage: 1000 MG DAILY
  3. CLOZAPINE [Suspect]
     Active Substance: CLOZAPINE
     Indication: Schizophrenia
     Dosage: 275 MG DAILY
     Dates: start: 20220411
  4. NIRMATRELVIR\RITONAVIR [Suspect]
     Active Substance: NIRMATRELVIR\RITONAVIR
     Indication: Severe acute respiratory syndrome
     Dosage: 150 MG AND 100 MG EVERY 12 HOURS
     Dates: start: 20220602, end: 20220607
  5. PALIPERIDONE PALMITATE [Concomitant]
     Active Substance: PALIPERIDONE PALMITATE
     Dosage: 525 MG EVERY 3 MONTHS

REACTIONS (2)
  - Drug interaction [Recovered/Resolved]
  - Neutropenia [Recovered/Resolved]
